FAERS Safety Report 18451626 (Version 4)
Quarter: 2021Q3

REPORT INFORMATION
  Report Type: Report from Study
  Country: US (occurrence: US)
  Receive Date: 20201102
  Receipt Date: 20210920
  Transmission Date: 20211014
  Serious: Yes (Life-Threatening, Hospitalization, Other)
  Sender: FDA-Public Use
  Company Number: US-TAKEDA-US202028717

PATIENT
  Age: 69 Year
  Sex: Female

DRUGS (55)
  1. TEDUGLUTIDE [Suspect]
     Active Substance: TEDUGLUTIDE
     Indication: SHORT-BOWEL SYNDROME
     Dosage: 2.9 MILLIGRAM (TED DAILY DOSES 0.0500 MG/KG, TED DOSES PER WEEK 7)
     Route: 065
     Dates: start: 20130812, end: 20130909
  2. TEDUGLUTIDE [Suspect]
     Active Substance: TEDUGLUTIDE
     Dosage: 1.5 MILLIGRAM (TED DAILY DOSE 0.0300 MG/KG, TED DOSES PER WEEK 7)
     Route: 065
     Dates: start: 20150114, end: 201510
  3. TEDUGLUTIDE [Suspect]
     Active Substance: TEDUGLUTIDE
     Dosage: 1.5 MILLIGRAM (TED DAILY DOSE 0.0300 MG/KG, TED DOSES PER WEEK 7)
     Route: 065
     Dates: start: 20150114, end: 201510
  4. TEDUGLUTIDE [Suspect]
     Active Substance: TEDUGLUTIDE
     Dosage: 2.9 MILLIGRAM (TED DAILY DOSE 0.0500 MG/KG, TED DOSES PER WEEK 7)
     Route: 065
     Dates: start: 201510, end: 201511
  5. TPN [AMINO ACIDS NOS;CARBOHYDRATES NOS;MINERALS NOS;VITAMINS NOS] [Concomitant]
     Active Substance: AMINO ACIDS\CARBOHYDRATES\MINERALS\VITAMINS
     Indication: PRODUCT USED FOR UNKNOWN INDICATION
  6. TEDUGLUTIDE [Suspect]
     Active Substance: TEDUGLUTIDE
     Indication: SHORT-BOWEL SYNDROME
     Dosage: 2.9 MILLIGRAM (TED DAILY DOSES 0.0500 MG/KG, TED DOSES PER WEEK 7)
     Route: 065
     Dates: start: 20130812, end: 20130909
  7. TEDUGLUTIDE [Suspect]
     Active Substance: TEDUGLUTIDE
     Dosage: 2.9 MILLIGRAM (TED 4 DOSES PER WEEK)
     Route: 065
     Dates: start: 20190515, end: 20190619
  8. LIDOCAINE. [Concomitant]
     Active Substance: LIDOCAINE
     Indication: PROPHYLAXIS
     Dosage: 2 PERCENT, QD
     Route: 067
     Dates: start: 20190705, end: 20190705
  9. TEDUGLUTIDE [Suspect]
     Active Substance: TEDUGLUTIDE
     Dosage: 2.0 MILLIGRAM (TED DAILY DOSE 0.0500 MG/KG, TED DOSES PER WEEK 7)
     Route: 065
     Dates: start: 20131009, end: 20131204
  10. TEDUGLUTIDE [Suspect]
     Active Substance: TEDUGLUTIDE
     Dosage: 2.9 MILLIGRAM (TED DAILY DOSE 0.0500 MG/KG, TED DOSES PER WEEK 7)
     Route: 065
     Dates: start: 201510, end: 201511
  11. TEDUGLUTIDE [Suspect]
     Active Substance: TEDUGLUTIDE
     Dosage: 1.5 MILLIGRAM (TED DAILY DOSE 0.0300 MG/KG, TED DOSES PER WEEK 7)
     Route: 065
     Dates: start: 20161116, end: 20170322
  12. TEDUGLUTIDE [Suspect]
     Active Substance: TEDUGLUTIDE
     Dosage: 2.9 MILLIGRAM (TED DAILY DOSE 0.0500 MG/KG, TED DOSES PER WEEK 7)
     Route: 065
     Dates: start: 20170322, end: 20190505
  13. TEDUGLUTIDE [Suspect]
     Active Substance: TEDUGLUTIDE
     Dosage: 2.9 MILLIGRAM (TED DAILY DOSE 0.0500 MG/KG, TED DOSES PER WEEK 7)
     Route: 065
     Dates: start: 20170322, end: 20190505
  14. CHLORDIAZEPOXIDE. [Concomitant]
     Active Substance: CHLORDIAZEPOXIDE
     Indication: ANXIETY
     Dosage: 2.50 MILLIGRAM, QD
     Route: 048
     Dates: start: 20200715
  15. SPIRIVA [Concomitant]
     Active Substance: TIOTROPIUM BROMIDE MONOHYDRATE
     Indication: HYPOXIA
     Dosage: 18 MICROGRAM, QD
     Route: 050
     Dates: start: 20210514
  16. TEDUGLUTIDE [Suspect]
     Active Substance: TEDUGLUTIDE
     Dosage: 1.5 MILLIGRAM (TED DAILY DOSE 0.0300 MG/KG, TED DAILY DOSES PER WEEK 7)
     Route: 065
     Dates: start: 20130920, end: 20131009
  17. TEDUGLUTIDE [Suspect]
     Active Substance: TEDUGLUTIDE
     Dosage: 1.5 MILLIGRAM (TED DAILY DOSE 0.0300 MG/KG, TED DAILY DOSES PER WEEK 7)
     Route: 065
     Dates: start: 20130920, end: 20131009
  18. TEDUGLUTIDE [Suspect]
     Active Substance: TEDUGLUTIDE
     Dosage: 2.9 MILLIGRAM (TED DAILY DOSE 0.0500 MG/KG, TED DOSES PER WEEK 7)
     Route: 065
     Dates: start: 20131204, end: 20140827
  19. TEDUGLUTIDE [Suspect]
     Active Substance: TEDUGLUTIDE
     Dosage: 1.5 MILLIGRAM (TED DAILY DOSE 0.0300 MG/KG, TED DAILY DOSE PER WEEK 7)
     Route: 065
     Dates: start: 20140827, end: 20140910
  20. TEDUGLUTIDE [Suspect]
     Active Substance: TEDUGLUTIDE
     Dosage: 1.5 MILLIGRAM (TED DAILY DOSE 0.0300 MG/KG, TED DAILY DOSE PER WEEK 7)
     Route: 065
     Dates: start: 20140827, end: 20140910
  21. TEDUGLUTIDE [Suspect]
     Active Substance: TEDUGLUTIDE
     Dosage: 0.7 MILLIGRAM (TED DAILY DOSE 0.0100 MG/KG, TED DAILY DOSES PER WEEK 7)
     Route: 065
     Dates: start: 20141001, end: 20150114
  22. TEDUGLUTIDE [Suspect]
     Active Substance: TEDUGLUTIDE
     Dosage: 1.5 MILLIGRAM (TED DAILY DOSE 0.0300 MG/KG, TED DOSES PER WEEK 7)
     Route: 065
     Dates: start: 20150114, end: 201510
  23. TEDUGLUTIDE [Suspect]
     Active Substance: TEDUGLUTIDE
     Dosage: 2.9 MILLIGRAM (TED 4 DOSES PER WEEK)
     Route: 065
     Dates: start: 20190515, end: 20190619
  24. TEDUGLUTIDE [Suspect]
     Active Substance: TEDUGLUTIDE
     Dosage: 2.9 MILLIGRAM (TED 4 DOSES PER WEEK)
     Route: 065
     Dates: start: 20190515, end: 20190619
  25. TEDUGLUTIDE [Suspect]
     Active Substance: TEDUGLUTIDE
     Dosage: 1.5 MILLIGRAM (TED DAILY DOSE 0.0300 MG/KG, TED DAILY DOSES PER WEEK 7)
     Route: 065
     Dates: start: 20130920, end: 20131009
  26. TEDUGLUTIDE [Suspect]
     Active Substance: TEDUGLUTIDE
     Dosage: 0.7 MILLIGRAM (TED DAILY DOSE 0.0100 MG/KG, TED DAILY DOSES PER WEEK 7)
     Route: 065
     Dates: start: 20141001, end: 20150114
  27. TEDUGLUTIDE [Suspect]
     Active Substance: TEDUGLUTIDE
     Dosage: 1.5 MILLIGRAM (TED DAILY DOSE 0.0300 MG/KG, TED DOSES PER WEEK 7)
     Route: 065
     Dates: start: 20161116, end: 20170322
  28. TEDUGLUTIDE [Suspect]
     Active Substance: TEDUGLUTIDE
     Dosage: 2.9 MILLIGRAM (TED DAILY DOSE 0.0500 MG/KG, TED DOSES PER WEEK 7)
     Route: 065
     Dates: start: 20170322, end: 20190505
  29. TRAZODONE HYDROCHLORIDE. [Concomitant]
     Active Substance: TRAZODONE HYDROCHLORIDE
     Indication: NECK PAIN
  30. THIAMINE HCL [Concomitant]
     Active Substance: THIAMINE HYDROCHLORIDE
     Indication: HYPOVITAMINOSIS
  31. TEDUGLUTIDE [Suspect]
     Active Substance: TEDUGLUTIDE
     Dosage: 1.5 MILLIGRAM (TED DAILY DOSE 0.0300 MG/KG, TED DAILY DOSES PER WEEK 7)
     Route: 065
     Dates: start: 20130920, end: 20131009
  32. TEDUGLUTIDE [Suspect]
     Active Substance: TEDUGLUTIDE
     Dosage: 2.0 MILLIGRAM (TED DAILY DOSE 0.0500 MG/KG, TED DOSES PER WEEK 7)
     Route: 065
     Dates: start: 20131009, end: 20131204
  33. TEDUGLUTIDE [Suspect]
     Active Substance: TEDUGLUTIDE
     Dosage: 2.9 MILLIGRAM (TED DAILY DOSE 0.0500 MG/KG, TED DOSES PER WEEK 7)
     Route: 065
     Dates: start: 20131204, end: 20140827
  34. TEDUGLUTIDE [Suspect]
     Active Substance: TEDUGLUTIDE
     Dosage: 1.5 MILLIGRAM (TED DAILY DOSE 0.0300 MG/KG, TED DOSES PER WEEK 7)
     Route: 065
     Dates: start: 20150114, end: 201510
  35. TEDUGLUTIDE [Suspect]
     Active Substance: TEDUGLUTIDE
     Dosage: 2.9 MILLIGRAM (TED DAILY DOSE 0.0500 MG/KG, TED DOSES PER WEEK 7)
     Route: 065
     Dates: start: 201510, end: 201511
  36. ZINC SULFATE. [Concomitant]
     Active Substance: ZINC SULFATE
     Indication: MINERAL DEFICIENCY
  37. DILAUDID [Concomitant]
     Active Substance: HYDROMORPHONE HYDROCHLORIDE
     Indication: PAIN
     Dosage: 0.50 MILLIGRAM, ONE DOSE
     Route: 058
     Dates: start: 20200125, end: 20200125
  38. TEDUGLUTIDE [Suspect]
     Active Substance: TEDUGLUTIDE
     Indication: SHORT-BOWEL SYNDROME
     Dosage: 2.9 MILLIGRAM (TED DAILY DOSES 0.0500 MG/KG, TED DOSES PER WEEK 7)
     Route: 065
     Dates: start: 20130812, end: 20130909
  39. TEDUGLUTIDE [Suspect]
     Active Substance: TEDUGLUTIDE
     Dosage: 2.9 MILLIGRAM (TED DAILY DOSE 0.0500 MG/KG, TED DOSES PER WEEK 7)
     Route: 065
     Dates: start: 20131204, end: 20140827
  40. TEDUGLUTIDE [Suspect]
     Active Substance: TEDUGLUTIDE
     Dosage: 1.5 MILLIGRAM (TED DAILY DOSE 0.0300 MG/KG, TED DAILY DOSE PER WEEK 7)
     Route: 065
     Dates: start: 20140827, end: 20140910
  41. TEDUGLUTIDE [Suspect]
     Active Substance: TEDUGLUTIDE
     Dosage: 1.5 MILLIGRAM (TED DAILY DOSE 0.0300 MG/KG, TED DOSES PER WEEK 7)
     Route: 065
     Dates: start: 20161116, end: 20170322
  42. TEDUGLUTIDE [Suspect]
     Active Substance: TEDUGLUTIDE
     Dosage: 1.5 MILLIGRAM (TED DAILY DOSE 0.0300 MG/KG, TED DOSES PER WEEK 7)
     Route: 065
     Dates: start: 20161116, end: 20170322
  43. TEDUGLUTIDE [Suspect]
     Active Substance: TEDUGLUTIDE
     Dosage: 2.9 MILLIGRAM (TED DAILY DOSE 0.0500 MG/KG, TED DOSES PER WEEK 7)
     Route: 065
     Dates: start: 20170322, end: 20190505
  44. TEDUGLUTIDE [Suspect]
     Active Substance: TEDUGLUTIDE
     Dosage: 2.9 MILLIGRAM (TED 4 DOSES PER WEEK)
     Route: 065
     Dates: start: 20190515, end: 20190619
  45. TOLTERODINE TARTRATE. [Concomitant]
     Active Substance: TOLTERODINE TARTRATE
     Indication: ELECTROLYTE IMBALANCE
  46. CLIDINIUM [Concomitant]
     Active Substance: CLIDINIUM
     Indication: ABDOMINAL PAIN
     Dosage: 5 MILLIGRAM, QD
     Route: 048
     Dates: start: 20200715
  47. TEDUGLUTIDE [Suspect]
     Active Substance: TEDUGLUTIDE
     Indication: SHORT-BOWEL SYNDROME
     Dosage: 2.9 MILLIGRAM (TED DAILY DOSES 0.0500 MG/KG, TED DOSES PER WEEK 7)
     Route: 065
     Dates: start: 20130812, end: 20130909
  48. TEDUGLUTIDE [Suspect]
     Active Substance: TEDUGLUTIDE
     Dosage: 2.0 MILLIGRAM (TED DAILY DOSE 0.0500 MG/KG, TED DOSES PER WEEK 7)
     Route: 065
     Dates: start: 20131009, end: 20131204
  49. TEDUGLUTIDE [Suspect]
     Active Substance: TEDUGLUTIDE
     Dosage: 2.0 MILLIGRAM (TED DAILY DOSE 0.0500 MG/KG, TED DOSES PER WEEK 7)
     Route: 065
     Dates: start: 20131009, end: 20131204
  50. TEDUGLUTIDE [Suspect]
     Active Substance: TEDUGLUTIDE
     Dosage: 2.9 MILLIGRAM (TED DAILY DOSE 0.0500 MG/KG, TED DOSES PER WEEK 7)
     Route: 065
     Dates: start: 20131204, end: 20140827
  51. TEDUGLUTIDE [Suspect]
     Active Substance: TEDUGLUTIDE
     Dosage: 1.5 MILLIGRAM (TED DAILY DOSE 0.0300 MG/KG, TED DAILY DOSE PER WEEK 7)
     Route: 065
     Dates: start: 20140827, end: 20140910
  52. TEDUGLUTIDE [Suspect]
     Active Substance: TEDUGLUTIDE
     Dosage: 0.7 MILLIGRAM (TED DAILY DOSE 0.0100 MG/KG, TED DAILY DOSES PER WEEK 7)
     Route: 065
     Dates: start: 20141001, end: 20150114
  53. TEDUGLUTIDE [Suspect]
     Active Substance: TEDUGLUTIDE
     Dosage: 0.7 MILLIGRAM (TED DAILY DOSE 0.0100 MG/KG, TED DAILY DOSES PER WEEK 7)
     Route: 065
     Dates: start: 20141001, end: 20150114
  54. TEDUGLUTIDE [Suspect]
     Active Substance: TEDUGLUTIDE
     Dosage: 2.9 MILLIGRAM (TED DAILY DOSE 0.0500 MG/KG, TED DOSES PER WEEK 7)
     Route: 065
     Dates: start: 201510, end: 201511
  55. ONDANSETRON [Concomitant]
     Active Substance: ONDANSETRON
     Indication: NAUSEA
     Dosage: 4 MILLIGRAM, ONE DOSE
     Route: 058
     Dates: start: 20200125, end: 20200127

REACTIONS (4)
  - Hyponatraemia [Recovered/Resolved with Sequelae]
  - Staphylococcal sepsis [Recovered/Resolved]
  - COVID-19 [Not Recovered/Not Resolved]
  - Hypomagnesaemia [Recovered/Resolved]

NARRATIVE: CASE EVENT DATE: 20200707
